FAERS Safety Report 7714900-8 (Version None)
Quarter: 2011Q3

REPORT INFORMATION
  Report Type: 
  Country: None (occurrence: None)
  Receive Date: 20110822
  Receipt Date: 20110810
  Transmission Date: 20111222
  Serious: Yes (Disabling, Other)
  Sender: FDA-Public Use
  Company Number: AUR-APL-2011-04619

PATIENT
  Age: 28 Year
  Sex: Female
  Weight: 94 kg

DRUGS (2)
  1. METFORMIN HCL [Concomitant]
  2. AMOXICILLIN [Suspect]
     Indication: URINARY TRACT INFECTION
     Dosage: 1000 MG (250 MG, 4 IN 1 D), ORAL
     Route: 048

REACTIONS (3)
  - URTICARIA [None]
  - TOXIC SKIN ERUPTION [None]
  - MATERNAL EXPOSURE DURING PREGNANCY [None]
